FAERS Safety Report 20100332 (Version 1)
Quarter: 2021Q4

REPORT INFORMATION
  Report Type: Spontaneous
  Country: US (occurrence: US)
  Receive Date: 20211123
  Receipt Date: 20211123
  Transmission Date: 20220303
  Serious: No
  Sender: FDA-Public Use
  Company Number: US-CIPLA LTD.-2020US09552

PATIENT

DRUGS (2)
  1. BUDESONIDE [Suspect]
     Active Substance: BUDESONIDE
     Indication: Lung disorder
     Dosage: UNK, BID
     Route: 065
     Dates: start: 202011
  2. ALBUTEROL [Suspect]
     Active Substance: ALBUTEROL
     Indication: Lung disorder
     Dosage: UNK, TID
     Route: 065
     Dates: start: 202011

REACTIONS (1)
  - Wrong technique in product usage process [Unknown]

NARRATIVE: CASE EVENT DATE: 20201101
